FAERS Safety Report 15101254 (Version 2)
Quarter: 2019Q2

REPORT INFORMATION
  Report Type: Spontaneous
  Country: CA (occurrence: CA)
  Receive Date: 20180703
  Receipt Date: 20190612
  Transmission Date: 20190711
  Serious: Yes (Other)
  Sender: FDA-Public Use
  Company Number: CA-TEVA-2018-CA-917409

PATIENT
  Age: 62 Year
  Sex: Female
  Weight: 65 kg

DRUGS (23)
  1. PREDNISONE. [Suspect]
     Active Substance: PREDNISONE
     Route: 065
  2. PREDNISONE. [Suspect]
     Active Substance: PREDNISONE
     Route: 065
  3. ALTACE [Concomitant]
     Active Substance: RAMIPRIL
  4. BUDESONIDE. [Concomitant]
     Active Substance: BUDESONIDE
  5. SYNTHROID [Concomitant]
     Active Substance: LEVOTHYROXINE SODIUM
  6. GLICLAZIDE [Concomitant]
     Active Substance: GLICLAZIDE
  7. METFORMIN [Concomitant]
     Active Substance: METFORMIN HYDROCHLORIDE
  8. TECTA [Concomitant]
     Active Substance: PANTOPRAZOLE MAGNESIUM
  9. PREDNISONE. [Suspect]
     Active Substance: PREDNISONE
     Indication: RHEUMATOID ARTHRITIS
     Route: 065
  10. PREDNISONE. [Suspect]
     Active Substance: PREDNISONE
     Route: 065
  11. PREDNISONE. [Suspect]
     Active Substance: PREDNISONE
     Indication: RHEUMATOID ARTHRITIS
     Dosage: 7 MILLIGRAM DAILY;
     Route: 065
  12. HYDROMORPH CONTIN [Concomitant]
     Active Substance: HYDROMORPHONE
  13. SULFASALAZINE. [Concomitant]
     Active Substance: SULFASALAZINE
  14. PREDNISONE. [Suspect]
     Active Substance: PREDNISONE
     Route: 065
  15. PREDNISONE. [Suspect]
     Active Substance: PREDNISONE
     Route: 065
  16. PREDNISONE. [Suspect]
     Active Substance: PREDNISONE
     Route: 065
  17. ERGOCALCIFEROL. [Concomitant]
     Active Substance: ERGOCALCIFEROL
     Route: 065
  18. MAGNESIUM [Concomitant]
     Active Substance: MAGNESIUM
  19. ASA [Concomitant]
     Active Substance: ASPIRIN
  20. FERAMAX [Concomitant]
     Active Substance: IRON\POLYSACCHARIDES
  21. FOLATE [Concomitant]
     Active Substance: FOLATE SODIUM
  22. METHOTREXATE. [Concomitant]
     Active Substance: METHOTREXATE
     Route: 013
  23. VITAMIN B12 [Concomitant]
     Active Substance: CYANOCOBALAMIN

REACTIONS (1)
  - Spinal fracture [Unknown]
